FAERS Safety Report 7598549-6 (Version None)
Quarter: 2011Q3

REPORT INFORMATION
  Report Type: 
  Country: None (occurrence: None)
  Receive Date: 20110708
  Receipt Date: 20110629
  Transmission Date: 20111222
  Serious: Yes (Hospitalization, Other)
  Sender: FDA-Public Use
  Company Number: IT-ELI_LILLY_AND_COMPANY-IT201106006715

PATIENT
  Age: 53 Year
  Sex: Male

DRUGS (2)
  1. BYETTA [Suspect]
     Indication: TYPE 2 DIABETES MELLITUS
     Dosage: 10 UG, BID
     Dates: start: 20100101
  2. METFORMIN HCL [Concomitant]
     Dosage: UNK

REACTIONS (2)
  - EXTRASYSTOLES [None]
  - HEPATITIS FULMINANT [None]
